FAERS Safety Report 19372591 (Version 4)
Quarter: 2021Q3

REPORT INFORMATION
  Report Type: Spontaneous
  Country: JP (occurrence: JP)
  Receive Date: 20210604
  Receipt Date: 20210914
  Transmission Date: 20211014
  Serious: Yes (Death, Life-Threatening, Hospitalization, Other)
  Sender: FDA-Public Use
  Company Number: JP-ASTELLAS-2021JP010374

PATIENT
  Age: 74 Year
  Sex: Female
  Weight: 54 kg

DRUGS (34)
  1. PANTETHINE [Concomitant]
     Active Substance: PANTETHINE
     Indication: PROPHYLAXIS
     Route: 048
     Dates: start: 20200219, end: 20210415
  2. CALCIUM LACTATE [Concomitant]
     Active Substance: CALCIUM LACTATE
     Indication: PROPHYLAXIS
     Route: 048
     Dates: start: 20210105, end: 20210415
  3. MEROPENEM. [Concomitant]
     Active Substance: MEROPENEM
     Indication: RECTAL ABSCESS
     Route: 041
     Dates: start: 20210412, end: 20210422
  4. LINEZOLID. [Concomitant]
     Active Substance: LINEZOLID
     Indication: RECTAL ABSCESS
     Dosage: UNK UNK, UNKNOWN FREQ.
     Route: 065
     Dates: start: 20210105
  5. XOSPATA [Suspect]
     Active Substance: GILTERITINIB
     Indication: ACUTE MYELOID LEUKAEMIA RECURRENT
     Route: 048
     Dates: start: 20201211, end: 20201218
  6. NEXIUM [Concomitant]
     Active Substance: ESOMEPRAZOLE MAGNESIUM
     Indication: PROPHYLAXIS
     Route: 048
     Dates: start: 20200219, end: 20210415
  7. MEROPENEM. [Concomitant]
     Active Substance: MEROPENEM
     Indication: RECTAL ULCER
     Dosage: UNK UNK, UNKNOWN FREQ.
     Route: 065
     Dates: start: 20210105
  8. ALFAROL [Concomitant]
     Active Substance: ALFACALCIDOL
     Indication: PROPHYLAXIS
     Route: 048
     Dates: start: 20210110, end: 20210415
  9. XOSPATA [Suspect]
     Active Substance: GILTERITINIB
     Dosage: 120 MG ON MON, WED, AND FRI AND 80 MG ON TUE, THUR, SAT, AND SUN, ONCE DAILY
     Route: 048
     Dates: start: 20210210
  10. VANCOMYCIN [Concomitant]
     Active Substance: VANCOMYCIN
     Indication: PYREXIA
     Dosage: UNK UNK, UNKNOWN FREQ.
     Route: 065
     Dates: start: 20201218
  11. LINEZOLID. [Concomitant]
     Active Substance: LINEZOLID
     Dosage: UNK UNK, UNKNOWN FREQ.
     Route: 065
     Dates: start: 20210316
  12. XOSPATA [Suspect]
     Active Substance: GILTERITINIB
     Route: 048
     Dates: start: 20210102
  13. XOSPATA [Suspect]
     Active Substance: GILTERITINIB
     Route: 048
     Dates: start: 20210126
  14. DAIPHEN [Concomitant]
     Active Substance: SULFAMETHOXAZOLE\TRIMETHOPRIM
     Indication: PROPHYLAXIS
     Dosage: NO DOSE SETTING UNK, ONCE DAILY
     Route: 048
     Dates: start: 20200217, end: 20210414
  15. CEFEPIME [Concomitant]
     Active Substance: CEFEPIME HYDROCHLORIDE
     Indication: RECTAL ABSCESS
     Dosage: UNK UNK, UNKNOWN FREQ.
     Route: 065
     Dates: start: 20210116
  16. CUBICIN [Concomitant]
     Active Substance: DAPTOMYCIN
     Indication: RECTAL ULCER
     Dosage: UNK UNK, UNKNOWN FREQ.
     Route: 065
     Dates: start: 20210116
  17. DECADRON [Concomitant]
     Active Substance: DEXAMETHASONE
     Indication: TUMOUR ASSOCIATED FEVER
     Route: 048
     Dates: start: 20210202, end: 20210415
  18. ACICLOVIR [Concomitant]
     Active Substance: ACYCLOVIR
     Indication: PROPHYLAXIS
     Route: 048
     Dates: start: 20200224, end: 20210414
  19. AMITIZA [Concomitant]
     Active Substance: LUBIPROSTONE
     Indication: PROPHYLAXIS
     Route: 048
     Dates: start: 20210101, end: 20210415
  20. FUROSEMIDE. [Concomitant]
     Active Substance: FUROSEMIDE
     Dosage: UNK UNK, UNKNOWN FREQ.
     Route: 065
     Dates: start: 20210221
  21. XOSPATA [Suspect]
     Active Substance: GILTERITINIB
     Route: 048
     Dates: start: 20201231
  22. XOSPATA [Suspect]
     Active Substance: GILTERITINIB
     Route: 048
     Dates: start: 20210413, end: 20210415
  23. MEROPENEM. [Concomitant]
     Active Substance: MEROPENEM
     Indication: PYREXIA
     Dosage: UNK UNK, UNKNOWN FREQ.
     Route: 065
     Dates: start: 20201218
  24. VANCOMYCIN [Concomitant]
     Active Substance: VANCOMYCIN
     Indication: RECTAL ABSCESS
     Dosage: UNK UNK, UNKNOWN FREQ.
     Route: 065
     Dates: start: 20210201
  25. VANCOMYCIN [Concomitant]
     Active Substance: VANCOMYCIN
     Dosage: UNK UNK, UNKNOWN FREQ.
     Route: 065
     Dates: start: 20210225
  26. MEROPENEM. [Concomitant]
     Active Substance: MEROPENEM
     Dosage: UNK UNK, UNKNOWN FREQ.
     Route: 065
     Dates: start: 20210324
  27. CUBICIN [Concomitant]
     Active Substance: DAPTOMYCIN
     Indication: RECTAL ABSCESS
     Route: 041
     Dates: start: 20210412, end: 20210422
  28. FUROSEMIDE. [Concomitant]
     Active Substance: FUROSEMIDE
     Indication: OEDEMA
     Route: 048
     Dates: start: 20210210, end: 20210415
  29. TEICOPLANIN [Concomitant]
     Active Substance: TEICOPLANIN
     Indication: RECTAL ABSCESS
     Dosage: UNK UNK, UNKNOWN FREQ.
     Route: 065
     Dates: start: 20210330
  30. XOSPATA [Suspect]
     Active Substance: GILTERITINIB
     Route: 048
     Dates: start: 20201223
  31. XOSPATA [Suspect]
     Active Substance: GILTERITINIB
     Route: 048
     Dates: start: 20210331
  32. MAGNESIUM OXIDE. [Concomitant]
     Active Substance: MAGNESIUM OXIDE
     Indication: PROPHYLAXIS
     Route: 048
     Dates: start: 20200219, end: 20210415
  33. VORICONAZOLE. [Concomitant]
     Active Substance: VORICONAZOLE
     Indication: PROPHYLAXIS
     Route: 048
     Dates: start: 20200220, end: 20210415
  34. LEVOFLOXACIN HEMIHYDRATE [Concomitant]
     Active Substance: LEVOFLOXACIN
     Indication: RECTAL ABSCESS
     Dosage: UNK UNK, UNKNOWN FREQ.
     Route: 065
     Dates: start: 20210207

REACTIONS (9)
  - Electrocardiogram QT prolonged [Recovered/Resolved]
  - Tumour associated fever [Unknown]
  - Small intestinal obstruction [Recovering/Resolving]
  - Pyrexia [Recovered/Resolved]
  - Electrocardiogram QT prolonged [Recovered/Resolved]
  - Off label use [Unknown]
  - Bradycardia [Recovered/Resolved]
  - Rectal abscess [Unknown]
  - Oedema [Not Recovered/Not Resolved]

NARRATIVE: CASE EVENT DATE: 20201218
